FAERS Safety Report 5051766-1 (Version None)
Quarter: 2006Q3

REPORT INFORMATION
  Report Type: 
  Country: None (occurrence: None)
  Receive Date: 20060713
  Receipt Date: 20060713
  Transmission Date: 20061208
  Serious: Yes (Other)
  Sender: FDA-Public Use
  Company Number: None

PATIENT
  Sex: Male
  Weight: 130.6359 kg

DRUGS (2)
  1. TARCEVA [Suspect]
     Indication: NEOPLASM MALIGNANT
     Dosage: 100 MG, QD, PO
     Route: 048
     Dates: start: 20051201, end: 20060114
  2. AVASTIN [Suspect]
     Indication: NEOPLASM MALIGNANT
     Dosage: 10 MG/M2 Q 14 DAYS IV
     Route: 042
     Dates: start: 20051114, end: 20060109

REACTIONS (3)
  - IMPAIRED HEALING [None]
  - JAW DISORDER [None]
  - SKIN ULCER [None]
